FAERS Safety Report 13055660 (Version 1)
Quarter: 2016Q4

REPORT INFORMATION
  Report Type: Spontaneous
  Country: US (occurrence: US)
  Receive Date: 20161222
  Receipt Date: 20161222
  Transmission Date: 20170207
  Serious: Yes (Hospitalization)
  Sender: FDA-Public Use
  Company Number: US-RELYPSA-RLY2016004481

PATIENT
  Age: 45 Year
  Sex: Male

DRUGS (1)
  1. VELTASSA [Suspect]
     Active Substance: PATIROMER
     Indication: PRODUCT USED FOR UNKNOWN INDICATION
     Dosage: 8.4 G, UNKNOWN
     Route: 065
     Dates: start: 201612, end: 201612

REACTIONS (3)
  - Arteriovenous fistula operation [Unknown]
  - Dialysis [Unknown]
  - Catheter placement [Unknown]

NARRATIVE: CASE EVENT DATE: 201612
